FAERS Safety Report 6992306-7 (Version None)
Quarter: 2010Q3

REPORT INFORMATION
  Report Type: 
  Country: None (occurrence: None)
  Receive Date: 20100915
  Receipt Date: 20100908
  Transmission Date: 20110219
  Serious: Yes (Hospitalization)
  Sender: FDA-Public Use
  Company Number: 018428

PATIENT
  Sex: Male

DRUGS (21)
  1. CERTOLIZUMAB PEGOL (CERTOLIZUMAB PEFOL) [Suspect]
     Indication: RHEUMATOID ARTHRITIS
     Dosage: (200 MG, NO OF DOSES: 6 SUBCUTANEOUS)
     Route: 058
     Dates: start: 20100519, end: 20100628
  2. CERTOLIZUMAB PEGOL (CERTOLIZUMAB PEFOL) [Suspect]
     Indication: RHEUMATOID ARTHRITIS
     Dosage: (200 MG, NO OF DOSES: 6 SUBCUTANEOUS)
     Route: 058
     Dates: start: 20100714
  3. PREDNISOLONE [Concomitant]
  4. SULFASALAZINE [Concomitant]
  5. ASPIRIN [Concomitant]
  6. DIOVAN /01319601/ [Concomitant]
  7. DOCITON [Concomitant]
  8. TORASEMIDE [Concomitant]
  9. ISMN [Concomitant]
  10. BICANORM /01764101/ [Concomitant]
  11. GLURENORM [Concomitant]
  12. LEVOTHYROXINE SODIUM [Concomitant]
  13. PANTOPRAZOLE [Concomitant]
  14. IDEOS /00944201/ [Concomitant]
  15. TAMSULOSIN [Concomitant]
  16. OXYBUTYNIN [Concomitant]
  17. SIMVASTATIN [Concomitant]
  18. CARENAL [Concomitant]
  19. TRAMAL [Concomitant]
  20. VIANI [Concomitant]
  21. XALATAN [Concomitant]

REACTIONS (6)
  - BLOOD CREATININE DECREASED [None]
  - ERYSIPELAS [None]
  - JOINT SWELLING [None]
  - MOVEMENT DISORDER [None]
  - MYALGIA [None]
  - PAIN [None]
